FAERS Safety Report 17445751 (Version 4)
Quarter: 2020Q1

REPORT INFORMATION
  Report Type: Spontaneous
  Country: US (occurrence: US)
  Receive Date: 20200221
  Receipt Date: 20200311
  Transmission Date: 20200409
  Serious: Yes (Hospitalization, Other)
  Sender: FDA-Public Use
  Company Number: US-PFIZER INC-2020075773

PATIENT
  Age: 44 Year
  Sex: Male
  Weight: 88 kg

DRUGS (5)
  1. CLINDAMYCIN. [Suspect]
     Active Substance: CLINDAMYCIN
     Dosage: 150 MG, 3X/DAY
     Dates: start: 20190716
  2. CLINDAMYCIN. [Interacting]
     Active Substance: CLINDAMYCIN
     Dosage: 150 MG, UNK
     Dates: start: 20200125
  3. GABAPENTIN. [Interacting]
     Active Substance: GABAPENTIN
     Indication: PAIN
     Dosage: 800 MG, 4X/DAY
  4. GABAPENTIN. [Interacting]
     Active Substance: GABAPENTIN
     Indication: SEIZURE
     Dosage: 800 MG, 3X/DAY
  5. CLINDAMYCIN. [Interacting]
     Active Substance: CLINDAMYCIN
     Dosage: 300 MG, 1X/DAY, (PATIENT DROPPED HIMSELF TO TWO CAPSULES A DAY)

REACTIONS (12)
  - Diarrhoea [Unknown]
  - Seizure [Recovered/Resolved with Sequelae]
  - Dehydration [Unknown]
  - Disorientation [Unknown]
  - Irritability [Unknown]
  - Headache [Unknown]
  - Muscle spasms [Unknown]
  - Near death experience [Unknown]
  - Intentional product misuse [Unknown]
  - Muscle twitching [Unknown]
  - Aggression [Unknown]
  - Drug interaction [Unknown]

NARRATIVE: CASE EVENT DATE: 20200125
